FAERS Safety Report 14554151 (Version 1)
Quarter: 2018Q1

REPORT INFORMATION
  Report Type: Spontaneous
  Country: GR (occurrence: US)
  Receive Date: 20180220
  Receipt Date: 20180220
  Transmission Date: 20180509
  Serious: Yes (Other)
  Sender: FDA-Public Use
  Company Number: GR-AMNEAL PHARMACEUTICALS-2018AMN00085

PATIENT
  Age: 14 Year
  Sex: Female

DRUGS (1)
  1. ACYCLOVIR. [Suspect]
     Active Substance: ACYCLOVIR
     Indication: MENINGOENCEPHALITIS HERPETIC
     Dosage: 30 MG/KG, UNK, IN 100 ML SODIUM CHLORIDE IN THREE DOSES
     Route: 042

REACTIONS (4)
  - Dermatitis bullous [Recovered/Resolved]
  - Scar [Unknown]
  - Injection site necrosis [Recovered/Resolved]
  - Injection site pain [Recovered/Resolved]
